FAERS Safety Report 5878386-0 (Version None)
Quarter: 2008Q3

REPORT INFORMATION
  Report Type: 
  Country: None (occurrence: None)
  Receive Date: 20080911
  Receipt Date: 20080902
  Transmission Date: 20090109
  Serious: Yes (Other)
  Sender: FDA-Public Use
  Company Number: AU-PFIZER INC-2008073231

PATIENT
  Sex: Male

DRUGS (8)
  1. ZELDOX (CAPSULES) [Suspect]
     Indication: PSYCHOTIC DISORDER
  2. LEXAPRO [Concomitant]
  3. TEMAZEPAM [Concomitant]
  4. VALIUM [Concomitant]
  5. ZINC [Concomitant]
  6. ASCORBIC ACID [Concomitant]
  7. ALL OTHER THERAPEUTIC PRODUCTS [Concomitant]
  8. COGENTIN [Concomitant]

REACTIONS (5)
  - DISCOMFORT [None]
  - DRY MOUTH [None]
  - PSYCHOMOTOR HYPERACTIVITY [None]
  - QUALITY OF LIFE DECREASED [None]
  - SOMNOLENCE [None]
